FAERS Safety Report 21297893 (Version 1)
Quarter: 2022Q3

REPORT INFORMATION
  Report Type: Report from Study
  Country: CR (occurrence: CR)
  Receive Date: 20220906
  Receipt Date: 20220906
  Transmission Date: 20221026
  Serious: Yes (Hospitalization)
  Sender: FDA-Public Use
  Company Number: CR-NOVARTISPH-NVSC2022CR200367

PATIENT
  Sex: Female

DRUGS (1)
  1. DIOVAN [Suspect]
     Active Substance: VALSARTAN
     Indication: Hypertension
     Dosage: 320 MG
     Route: 048
     Dates: start: 2022

REACTIONS (2)
  - Infarction [Not Recovered/Not Resolved]
  - Cardiac failure [Not Recovered/Not Resolved]
